FAERS Safety Report 6073447-8 (Version None)
Quarter: 2009Q1

REPORT INFORMATION
  Report Type: 
  Country: None (occurrence: None)
  Receive Date: 20090211
  Receipt Date: 20090204
  Transmission Date: 20090719
  Serious: Yes (Hospitalization)
  Sender: FDA-Public Use
  Company Number: GB-TEVA-184964ISR

PATIENT
  Age: 68 Year
  Sex: Female

DRUGS (1)
  1. DOXYCYCLINE [Suspect]
     Indication: EAR PAIN
     Dates: start: 20081027, end: 20081028

REACTIONS (2)
  - ANGINA PECTORIS [None]
  - DYSPEPSIA [None]
